FAERS Safety Report 9849893 (Version 1)
Quarter: 2014Q1

REPORT INFORMATION
  Report Type: Spontaneous
  Country: US (occurrence: US)
  Receive Date: 20140128
  Receipt Date: 20140128
  Transmission Date: 20141002
  Serious: Yes (Other)
  Sender: FDA-Public Use
  Company Number: US-PFIZER INC-2014022465

PATIENT
  Age: 70 Year
  Sex: Female

DRUGS (7)
  1. XALKORI [Suspect]
     Indication: LUNG NEOPLASM MALIGNANT
     Dosage: 250 MG, UNK
     Dates: start: 201211
  2. LOW DOSE ASPIRIN [Concomitant]
     Dosage: UNK
  3. BYSTOLIC [Concomitant]
     Dosage: UNK
  4. CALCIUM + VIT D [Concomitant]
     Dosage: UNK
  5. KLOR-CON M10 [Concomitant]
     Dosage: UNK
  6. LASIX [Concomitant]
     Dosage: UNK
  7. XGEVA [Concomitant]
     Dosage: UNK

REACTIONS (4)
  - Neurogenic bladder [Unknown]
  - Nausea [Unknown]
  - Diarrhoea [Unknown]
  - Photopsia [Unknown]
